FAERS Safety Report 6715672-6 (Version None)
Quarter: 2010Q2

REPORT INFORMATION
  Report Type: 
  Country: None (occurrence: None)
  Receive Date: 20100507
  Receipt Date: 20090526
  Transmission Date: 20101027
  Serious: No
  Sender: FDA-Public Use
  Company Number: A0786097A

PATIENT
  Age: 48 Year
  Sex: Female

DRUGS (1)
  1. DYNACIRC CR [Suspect]
     Indication: HYPERTENSION
     Dosage: 5MG PER DAY
     Route: 048
     Dates: start: 20030101

REACTIONS (3)
  - ARTHRALGIA [None]
  - JOINT SWELLING [None]
  - PAIN IN EXTREMITY [None]
